FAERS Safety Report 7477777-4 (Version None)
Quarter: 2011Q2

REPORT INFORMATION
  Report Type: 
  Country: None (occurrence: None)
  Receive Date: 20110513
  Receipt Date: 20110322
  Transmission Date: 20111010
  Serious: No
  Sender: FDA-Public Use
  Company Number: A0919451A

PATIENT
  Age: 35 Year
  Sex: Female

DRUGS (5)
  1. DIAZEPAM [Concomitant]
  2. TREXIMET [Suspect]
     Indication: MIGRAINE
     Dosage: 1CAP AS REQUIRED
     Route: 048
     Dates: start: 20110322
  3. LITHIUM [Concomitant]
  4. LEXAPRO [Concomitant]
  5. SYNTHROID [Concomitant]

REACTIONS (4)
  - HYPOAESTHESIA FACIAL [None]
  - CHEST DISCOMFORT [None]
  - JOINT RANGE OF MOTION DECREASED [None]
  - MUSCULOSKELETAL STIFFNESS [None]
